FAERS Safety Report 5338467-7 (Version None)
Quarter: 2007Q2

REPORT INFORMATION
  Report Type: 
  Country: None (occurrence: None)
  Receive Date: 20070530
  Receipt Date: 20070521
  Transmission Date: 20071010
  Serious: Yes (Death)
  Sender: FDA-Public Use
  Company Number: AU-ROCHE-498876

PATIENT
  Sex: Female

DRUGS (1)
  1. XELODA [Suspect]
     Indication: BREAST CANCER
     Dosage: NO DOSAGE REGIMEN, FREQUENCY AND ROUTE PROVIDED.
     Route: 065

REACTIONS (1)
  - DRUG TOXICITY [None]
